FAERS Safety Report 6270482-1 (Version None)
Quarter: 2009Q3

REPORT INFORMATION
  Report Type: 
  Country: None (occurrence: None)
  Receive Date: 20090716
  Receipt Date: 20090710
  Transmission Date: 20100115
  Serious: No
  Sender: FDA-Public Use
  Company Number: KR-JNJFOC-20090703806

PATIENT
  Age: 80 Year
  Sex: Female

DRUGS (4)
  1. DURAGESIC-100 [Suspect]
     Dosage: DOSE: HALF A PATCH EVERY 3 DAYS
     Route: 062
  2. DURAGESIC-100 [Suspect]
     Indication: RADICULAR PAIN
     Route: 062
  3. UNKNOWN MEDICATION [Concomitant]
     Indication: CEREBROVASCULAR ACCIDENT
     Route: 065
  4. UNKNOWN MEDICATION [Concomitant]
     Indication: PARKINSON'S DISEASE
     Route: 065

REACTIONS (4)
  - DIZZINESS [None]
  - SOMNOLENCE [None]
  - VOMITING [None]
  - WRONG TECHNIQUE IN DRUG USAGE PROCESS [None]
